FAERS Safety Report 6206608-5 (Version None)
Quarter: 2009Q2

REPORT INFORMATION
  Report Type: 
  Country: None (occurrence: None)
  Receive Date: 20090527
  Receipt Date: 20090527
  Transmission Date: 20091009
  Serious: Yes (Other)
  Sender: FDA-Public Use
  Company Number: None

PATIENT
  Age: 50 Year
  Sex: Male
  Weight: 122.4712 kg

DRUGS (1)
  1. METOPROLOL TARTRATE [Suspect]
     Indication: ATRIAL FIBRILLATION
     Dosage: 50 MG 2X PO
     Route: 048
     Dates: start: 20090413, end: 20090520

REACTIONS (4)
  - FATIGUE [None]
  - SPUTUM DISCOLOURED [None]
  - SPUTUM RETENTION [None]
  - TESTICULAR PAIN [None]
